FAERS Safety Report 12328397 (Version 1)
Quarter: 2016Q2

REPORT INFORMATION
  Report Type: Spontaneous
  Country: NL (occurrence: NL)
  Receive Date: 20160503
  Receipt Date: 20160503
  Transmission Date: 20160815
  Serious: Yes (Other)
  Sender: FDA-Public Use
  Company Number: NL-PFIZER INC-2016237246

PATIENT
  Age: 68 Year
  Sex: Female
  Weight: 55 kg

DRUGS (2)
  1. CLINDAMYCIN PHOSPHATE. [Suspect]
     Active Substance: CLINDAMYCIN PHOSPHATE
     Indication: ROSACEA
     Dosage: 1 DF, AS NEEDED
     Route: 003
     Dates: start: 201601, end: 201604
  2. ACID A VIT [Concomitant]
     Dosage: 1 DF, AS NEEDED
     Route: 003
     Dates: start: 1999

REACTIONS (5)
  - Erythema [Unknown]
  - Angioedema [Recovered/Resolved]
  - Ocular discomfort [Unknown]
  - Dry skin [Unknown]
  - Facial pain [Unknown]

NARRATIVE: CASE EVENT DATE: 20160201
